FAERS Safety Report 19458142 (Version 1)
Quarter: 2021Q2

REPORT INFORMATION
  Report Type: Spontaneous
  Country: IT (occurrence: IT)
  Receive Date: 20210624
  Receipt Date: 20210624
  Transmission Date: 20210717
  Serious: Yes (Hospitalization, Other)
  Sender: FDA-Public Use
  Company Number: IT-SA-2021SA198385

PATIENT
  Age: 62 Year
  Sex: Male

DRUGS (17)
  1. ONDANSETRONE DR. REDDY^S [Concomitant]
     Active Substance: ONDANSETRON HYDROCHLORIDE
     Dosage: 8 MG
     Route: 042
  2. TRIMETON [Concomitant]
     Active Substance: CHLORPHENIRAMINE MALEATE
     Dosage: 10 MG
     Route: 042
  3. PREDNISONE. [Concomitant]
     Active Substance: PREDNISONE
     Dosage: 10 MG
     Route: 048
  4. CARDIOASPIRIN [Concomitant]
     Active Substance: ASPIRIN
     Dosage: 100 MG
     Route: 048
  5. JEVTANA [Suspect]
     Active Substance: CABAZITAXEL
     Indication: PROSTATE CANCER
     Dosage: 50 MG
     Route: 042
     Dates: start: 20210112
  6. PEGFILGRASTIM [Concomitant]
     Active Substance: PEGFILGRASTIM
     Dosage: 0.6 ML
     Route: 058
  7. DECAPEPTYL [TRIPTORELIN] [Concomitant]
     Active Substance: TRIPTORELIN
     Dosage: 1 DF
     Route: 030
  8. RAMIPRIL. [Concomitant]
     Active Substance: RAMIPRIL
     Dosage: 5 MG
     Route: 048
  9. FAMOTIDINA EG [Concomitant]
     Dosage: 40 MG
     Route: 042
  10. SODIUM CHLORIDE 0.9% + DEXTROSE 5% [Concomitant]
     Dosage: 1 DF
     Route: 042
  11. LANSOPRAZOLE. [Concomitant]
     Active Substance: LANSOPRAZOLE
     Dosage: 15 MG
     Route: 048
  12. LUVION [CANRENONE] [Concomitant]
     Active Substance: CANRENONE
     Dosage: 50 MG
     Route: 048
  13. COLECALCIFEROL [Concomitant]
     Active Substance: CHOLECALCIFEROL
     Dosage: 50000 KIU
     Route: 048
  14. FUROSEMIDE. [Concomitant]
     Active Substance: FUROSEMIDE
     Dosage: 100 MG
     Route: 048
  15. PROCORALAN [Concomitant]
     Active Substance: IVABRADINE
     Dosage: 10 MG
     Route: 048
  16. BISOPROLOL FUMARATE. [Concomitant]
     Active Substance: BISOPROLOL FUMARATE
     Dosage: 2.5 MG
     Route: 048
  17. DECADRON [Concomitant]
     Active Substance: DEXAMETHASONE
     Dosage: 16 MG
     Route: 042

REACTIONS (11)
  - Agranulocytosis [Recovering/Resolving]
  - Dyspnoea at rest [Recovering/Resolving]
  - Asthenia [Recovering/Resolving]
  - Dysphagia [Recovering/Resolving]
  - Oral mucosal erythema [Recovering/Resolving]
  - C-reactive protein increased [Recovering/Resolving]
  - Oral pain [Recovering/Resolving]
  - Oral candidiasis [Recovering/Resolving]
  - Thrombocytopenia [Recovering/Resolving]
  - Weight decreased [Recovering/Resolving]
  - Pyrexia [Recovering/Resolving]

NARRATIVE: CASE EVENT DATE: 20210515
